FAERS Safety Report 8505934 (Version 3)
Quarter: 2012Q4

REPORT INFORMATION
  Report Type: Spontaneous
  Country: US (occurrence: None)
  Receive Date: 20120405
  Receipt Date: 20120824
  Transmission Date: 20130627
  Serious: Yes (Hospitalization, Other)
  Sender: FDA-Public Use
  Company Number: 2012-000517

PATIENT
  Age: 70 Year
  Sex: Female

DRUGS (29)
  1. ACTONEL [Suspect]
     Indication: OSTEOPOROSIS
     Dosage: 35 MG ONCE WEEKLY, ORAL
     Route: 048
     Dates: start: 20021008, end: 2011
  2. ULTRAM [Concomitant]
  3. NORVASC [Concomitant]
  4. AMITRIPTYLINE HYDROCHLORIDE [Concomitant]
  5. CYCLOBENZAPRINE [Concomitant]
  6. CALCIUM CARBONATE [Concomitant]
  7. ENALAPRIL MALEATE [Concomitant]
  8. SERTRALINE HYDROCHLORIDE [Concomitant]
  9. NEXIUM [Concomitant]
  10. HYDROCHLOROTHIAZIDE [Concomitant]
  11. ATENOLOL [Concomitant]
  12. CLINDAMYCIN [Concomitant]
  13. PREVIDENT (SODIUM FLUORIDE) [Concomitant]
  14. IBUPROFEN [Concomitant]
  15. CHLORHEXIDINE GLUCONATE [Concomitant]
  16. ADVAIR HFA [Concomitant]
  17. PREMARIN [Concomitant]
  18. METHYLPREDNISOLONE [Concomitant]
  19. PRILOSEC [Concomitant]
  20. BEXTRA /01401501/ (VALDECOXIB) [Concomitant]
  21. SPORANOX [Concomitant]
  22. DOXYCYCLINE [Concomitant]
  23. CEPHALEXIN /00145501/ (CEFALEXIN) [Concomitant]
  24. VIOXX [Concomitant]
  25. HYDROCORTISONE VALERATE (HYDROCORTISONE VALERATE) [Concomitant]
  26. PREDNISONE [Concomitant]
  27. SALSALATE (SALSALATE) [Concomitant]
  28. SMZ-TMP (SULFAMETHOXAZOLE, TRIMETHOPRIM) [Concomitant]
  29. DIAZEPAM [Concomitant]

REACTIONS (8)
  - FEMUR FRACTURE [None]
  - Comminuted fracture [None]
  - HYPOAESTHESIA [None]
  - ARTHRITIS [None]
  - ABASIA [None]
  - BURSITIS [None]
  - CATARACT OPERATION [None]
  - PAIN IN EXTREMITY [None]
